FAERS Safety Report 9921928 (Version 1)
Quarter: 2014Q1

REPORT INFORMATION
  Report Type: Spontaneous
  Country: US (occurrence: None)
  Receive Date: 20140221
  Receipt Date: 20140221
  Transmission Date: 20141002
  Serious: No
  Sender: FDA-Public Use
  Company Number: None

PATIENT
  Age: 49 Year
  Sex: Male
  Weight: 74.84 kg

DRUGS (2)
  1. ACETAMINOPHEN\BUTALBITAL [Suspect]
     Indication: TENSION HEADACHE
     Dosage: 1-2 TABLETS  EVERY 4-6 HOURS AS NEDED?LAST TWO REFILLS, OTHERS IN PAST
     Route: 048
  2. ACETAMINOPHEN\BUTALBITAL [Suspect]
     Indication: MIGRAINE
     Dosage: 1-2 TABLETS  EVERY 4-6 HOURS AS NEDED?LAST TWO REFILLS, OTHERS IN PAST
     Route: 048

REACTIONS (2)
  - Product quality issue [None]
  - Drug ineffective [None]
